FAERS Safety Report 18702553 (Version 4)
Quarter: 2021Q2

REPORT INFORMATION
  Report Type: Report from Study
  Country: CA (occurrence: CA)
  Receive Date: 20210105
  Receipt Date: 20210415
  Transmission Date: 20210717
  Serious: Yes (Hospitalization, Other)
  Sender: FDA-Public Use
  Company Number: CA-JNJFOC-20201256040

PATIENT
  Age: 46 Year
  Sex: Male

DRUGS (1)
  1. REMICADE [Suspect]
     Active Substance: INFLIXIMAB
     Indication: CROHN^S DISEASE
     Dosage: LAST DOSE ON 17?NOV?2020
     Route: 042
     Dates: start: 20100111

REACTIONS (6)
  - Weight decreased [Unknown]
  - Off label use [Unknown]
  - Arthritis [Unknown]
  - Staphylococcal sepsis [Unknown]
  - Osteomyelitis [Unknown]
  - Product use issue [Unknown]

NARRATIVE: CASE EVENT DATE: 20100111
